FAERS Safety Report 9476239 (Version 1)
Quarter: 2013Q3

REPORT INFORMATION
  Report Type: Spontaneous
  Country: US (occurrence: US)
  Receive Date: 20130826
  Receipt Date: 20130826
  Transmission Date: 20140515
  Serious: No
  Sender: FDA-Public Use
  Company Number: US-JNJFOC-20130807021

PATIENT
  Sex: Female
  Weight: 61.24 kg

DRUGS (5)
  1. DURAGESIC [Suspect]
     Indication: COMPLEX REGIONAL PAIN SYNDROME
     Route: 062
  2. OXYCONTIN [Concomitant]
     Indication: PAIN
     Route: 048
  3. OXYCONTIN [Concomitant]
     Indication: COMPLEX REGIONAL PAIN SYNDROME
     Route: 048
  4. DILAUDID [Concomitant]
     Indication: PAIN
     Route: 048
     Dates: start: 2012
  5. ESTROGEN [Concomitant]
     Indication: HORMONE REPLACEMENT THERAPY
     Route: 048

REACTIONS (2)
  - Wrong technique in drug usage process [Recovered/Resolved]
  - Application site ulcer [Recovered/Resolved]
